FAERS Safety Report 7182208-8 (Version None)
Quarter: 2010Q4

REPORT INFORMATION
  Report Type: 
  Country: None (occurrence: None)
  Receive Date: 20101221
  Receipt Date: 20100509
  Transmission Date: 20110411
  Serious: No
  Sender: FDA-Public Use
  Company Number: US-AMGEN-KDL411396

PATIENT

DRUGS (1)
  1. ENBREL [Suspect]
     Indication: ANKYLOSING SPONDYLITIS
     Dosage: 50 MG, QWK
     Route: 058
     Dates: start: 20100301, end: 20100419

REACTIONS (5)
  - BACK PAIN [None]
  - DRY SKIN [None]
  - FALL [None]
  - SKIN EXFOLIATION [None]
  - SPINAL FRACTURE [None]
